FAERS Safety Report 21233026 (Version 2)
Quarter: 2022Q3

REPORT INFORMATION
  Report Type: Spontaneous
  Country: US (occurrence: US)
  Receive Date: 20220819
  Receipt Date: 20220829
  Transmission Date: 20221027
  Serious: No
  Sender: FDA-Public Use
  Company Number: nICSR047

PATIENT
  Sex: Female

DRUGS (5)
  1. ASCLERA [Suspect]
     Active Substance: POLIDOCANOL
     Indication: Spider vein
     Route: 065
     Dates: start: 20220524, end: 20220524
  2. UNSPECIFIED INGREDIENT [Concomitant]
     Active Substance: UNSPECIFIED INGREDIENT
     Indication: Insomnia
  3. MELOXICAM [Concomitant]
     Active Substance: MELOXICAM
     Indication: Musculoskeletal pain
  4. SPIRONOLACTONE [Concomitant]
     Active Substance: SPIRONOLACTONE
     Indication: Product used for unknown indication
  5. AMBIEN [Concomitant]
     Active Substance: ZOLPIDEM TARTRATE
     Indication: Peak expiratory flow rate decreased

REACTIONS (1)
  - Drug ineffective [Unknown]
